FAERS Safety Report 4871097-X (Version None)
Quarter: 2005Q4

REPORT INFORMATION
  Report Type: 
  Country: None (occurrence: None)
  Receive Date: 20051229
  Receipt Date: 20051220
  Transmission Date: 20060501
  Serious: Yes (Life-Threatening, Hospitalization, Other)
  Sender: FDA-Public Use
  Company Number: 2005147299

PATIENT
  Age: 62 Year
  Sex: Female
  Weight: 82 kg

DRUGS (5)
  1. ZELDOX (CAPSULES) (ZIPRASIDONE) [Suspect]
     Indication: ANXIETY DISORDER
     Dosage: 80 MG, ORAL
     Route: 048
     Dates: start: 20050126, end: 20050301
  2. ZELDOX (CAPSULES) (ZIPRASIDONE) [Suspect]
     Indication: DEPRESSIVE DELUSION
     Dosage: 80 MG, ORAL
     Route: 048
     Dates: start: 20050126, end: 20050301
  3. LITHIUM CARBONATE [Concomitant]
  4. MIRTAZAPINE [Concomitant]
  5. RAMIPRIL [Concomitant]

REACTIONS (10)
  - ANOREXIA [None]
  - DIABETES MELLITUS [None]
  - DIABETIC KETOACIDOTIC HYPERGLYCAEMIC COMA [None]
  - ELECTROCARDIOGRAM QT PROLONGED [None]
  - HYPERGLYCAEMIA [None]
  - POLYURIA [None]
  - SINUS TACHYCARDIA [None]
  - SOMNOLENCE [None]
  - THIRST [None]
  - VOMITING [None]
